FAERS Safety Report 21110548 (Version 2)
Quarter: 2022Q3

REPORT INFORMATION
  Report Type: Report from Study
  Country: AU (occurrence: AU)
  Receive Date: 20220721
  Receipt Date: 20220915
  Transmission Date: 20221027
  Serious: Yes (Hospitalization)
  Sender: FDA-Public Use
  Company Number: AU-TAKEDA-2022TUS018775

PATIENT
  Age: 74 Year
  Sex: Female

DRUGS (2)
  1. VEDOLIZUMAB [Suspect]
     Active Substance: VEDOLIZUMAB
     Indication: Colitis ulcerative
     Dosage: 300 MILLIGRAM
     Route: 042
  2. VEDOLIZUMAB [Suspect]
     Active Substance: VEDOLIZUMAB
     Indication: Crohn^s disease
     Dosage: 300 MILLIGRAM
     Route: 042

REACTIONS (9)
  - Hospitalisation [Recovered/Resolved]
  - Oxygen saturation decreased [Unknown]
  - Poor venous access [Unknown]
  - Respiratory rate increased [Recovered/Resolved]
  - Infusion site injury [Unknown]
  - Blood pressure increased [Recovered/Resolved]
  - Abdominal pain [Unknown]
  - Arthralgia [Unknown]
  - Inappropriate schedule of product administration [Recovered/Resolved]

NARRATIVE: CASE EVENT DATE: 20220718
